FAERS Safety Report 10656339 (Version 1)
Quarter: 2014Q4

REPORT INFORMATION
  Report Type: Spontaneous
  Country: US (occurrence: US)
  Receive Date: 20141216
  Receipt Date: 20141216
  Transmission Date: 20150529
  Serious: No
  Sender: FDA-Public Use
  Company Number: US-CELGENEUS-163-20785-14053780

PATIENT
  Sex: Female

DRUGS (2)
  1. THALOMID [Suspect]
     Active Substance: THALIDOMIDE
     Indication: PLASMA CELL MYELOMA
     Route: 048
     Dates: start: 201309
  2. THALOMID [Suspect]
     Active Substance: THALIDOMIDE
     Indication: PRURIGO
     Route: 048
     Dates: start: 201403

REACTIONS (7)
  - Carpal tunnel syndrome [Unknown]
  - Dizziness [Unknown]
  - Hypoaesthesia [Unknown]
  - Paraesthesia [Unknown]
  - Dermatitis exfoliative [Unknown]
  - Drug dose omission [Unknown]
  - Dry skin [Unknown]
